FAERS Safety Report 7879517-3 (Version None)
Quarter: 2011Q4

REPORT INFORMATION
  Report Type: 
  Country: None (occurrence: None)
  Receive Date: 20111101
  Receipt Date: 20110106
  Transmission Date: 20120403
  Serious: No
  Sender: FDA-Public Use
  Company Number: US-ABBOTT-11P-163-0696276-00

PATIENT
  Sex: Female
  Weight: 63.56 kg

DRUGS (7)
  1. QVAR 40 [Concomitant]
     Indication: SINUSITIS
  2. NASONEX [Concomitant]
     Indication: CHRONIC SINUSITIS
  3. UNKNOWN MEDICATION [Concomitant]
     Indication: OSTEOPOROSIS
  4. CLOPIDOGREN [Concomitant]
     Indication: CEREBROVASCULAR ACCIDENT
  5. CA CARBONATE [Concomitant]
     Indication: MINERAL SUPPLEMENTATION
  6. BIAXIN [Suspect]
     Indication: SINUSITIS
     Dates: start: 20020101
  7. UNKNOWN EYE MEDICATION [Concomitant]
     Indication: EYE DISORDER

REACTIONS (2)
  - SKIN ODOUR ABNORMAL [None]
  - DYSGEUSIA [None]
